FAERS Safety Report 6709361-1 (Version None)
Quarter: 2010Q2

REPORT INFORMATION
  Report Type: 
  Country: None (occurrence: None)
  Receive Date: 20100504
  Receipt Date: 20100420
  Transmission Date: 20101027
  Serious: Yes (Other)
  Sender: FDA-Public Use
  Company Number: PHHY2010AR25046

PATIENT
  Sex: Female

DRUGS (2)
  1. EXFORGE [Suspect]
     Indication: HYPERTENSION
     Dosage: 1 TABLET DAILY, (320/5 MG)
  2. ALLOPURINOL [Concomitant]
     Dosage: 300 MG, UNK

REACTIONS (6)
  - ANAEMIA [None]
  - BLOOD CHOLESTEROL DECREASED [None]
  - BLOOD PRESSURE INCREASED [None]
  - EAR DISCOMFORT [None]
  - MALAISE [None]
  - URINARY TRACT INFECTION [None]
